FAERS Safety Report 8066105-1 (Version None)
Quarter: 2012Q1

REPORT INFORMATION
  Report Type: 
  Country: None (occurrence: None)
  Receive Date: 20120117
  Receipt Date: 20120106
  Transmission Date: 20120608
  Serious: Yes (Hospitalization)
  Sender: FDA-Public Use
  Company Number: 2012AP000090

PATIENT
  Age: 61 Year
  Sex: Female

DRUGS (19)
  1. LANTUS [Concomitant]
  2. ACETAMINOPHEN [Concomitant]
  3. SPIRIVA [Concomitant]
  4. DILTIAZEM HYDROCHLORIDE [Concomitant]
  5. WARFARIN SODIUM [Concomitant]
  6. LEVOFLOXACIN [Suspect]
     Indication: PNEUMONIA
     Dosage: 500 MG; PO; QD
     Route: 048
     Dates: start: 20111202, end: 20111204
  7. ALLOPURINOL [Suspect]
     Indication: GOUT
     Dosage: 100 MG;QD; PO
     Route: 048
     Dates: start: 20111202, end: 20111229
  8. AMINOPHYLLIN [Concomitant]
  9. BUMETANIDE (BUNETANIDE) [Concomitant]
  10. CODEINE SULFATE [Concomitant]
  11. LOSARTAN POTASSIUM [Concomitant]
  12. ALLOPURINOL [Concomitant]
  13. OMEPRAZOLE [Concomitant]
  14. CALCICHEW D3 (LEKOVIT CA) [Concomitant]
  15. PRAVASTATIN [Concomitant]
  16. ALBUTEROL SULFATE [Concomitant]
  17. DIGOXIN [Concomitant]
  18. HUMALOG [Concomitant]
  19. SYMBICORT [Concomitant]

REACTIONS (1)
  - ACUTE GENERALISED EXANTHEMATOUS PUSTULOSIS [None]
